FAERS Safety Report 4749448-6 (Version None)
Quarter: 2005Q3

REPORT INFORMATION
  Report Type: 
  Country: None (occurrence: None)
  Receive Date: 20050822
  Receipt Date: 20050811
  Transmission Date: 20060218
  Serious: Yes (Hospitalization)
  Sender: FDA-Public Use
  Company Number: FR-JNJFOC-20050803046

PATIENT
  Age: 34 Year
  Sex: Female
  Weight: 88 kg

DRUGS (5)
  1. REMICADE [Suspect]
     Dosage: 5TH INFUSION
     Route: 042
  2. REMICADE [Suspect]
     Dosage: 4TH INFUSION
     Route: 042
  3. REMICADE [Suspect]
     Indication: ANKYLOSING SPONDYLITIS
     Route: 042
  4. IMUREL [Concomitant]
     Indication: CROHN'S DISEASE
     Route: 065
  5. CORTANCYL [Concomitant]
     Indication: CROHN'S DISEASE
     Route: 065

REACTIONS (6)
  - DIZZINESS [None]
  - INTRACRANIAL VENOUS SINUS THROMBOSIS [None]
  - MIGRAINE WITHOUT AURA [None]
  - NECK PAIN [None]
  - PULMONARY EMBOLISM [None]
  - THROMBOPHLEBITIS [None]
